FAERS Safety Report 25272911 (Version 1)
Quarter: 2025Q2

REPORT INFORMATION
  Report Type: Spontaneous
  Country: CN (occurrence: CN)
  Receive Date: 20250506
  Receipt Date: 20250506
  Transmission Date: 20250717
  Serious: Yes (Hospitalization)
  Sender: MYLAN
  Company Number: CN-MYLANLABS-2025M1036954

PATIENT
  Age: 60 Year
  Sex: Female

DRUGS (4)
  1. LIPITOR [Suspect]
     Active Substance: ATORVASTATIN CALCIUM
     Indication: Symptomatic treatment
     Dosage: 20 MILLIGRAM, QD (20 MG VIA NASAL FEEDING QD)
     Dates: start: 20250130, end: 20250220
  2. LIPITOR [Suspect]
     Active Substance: ATORVASTATIN CALCIUM
     Dosage: 20 MILLIGRAM, QD (20 MG VIA NASAL FEEDING QD)
     Route: 045
     Dates: start: 20250130, end: 20250220
  3. LIPITOR [Suspect]
     Active Substance: ATORVASTATIN CALCIUM
     Dosage: 20 MILLIGRAM, QD (20 MG VIA NASAL FEEDING QD)
     Route: 045
     Dates: start: 20250130, end: 20250220
  4. LIPITOR [Suspect]
     Active Substance: ATORVASTATIN CALCIUM
     Dosage: 20 MILLIGRAM, QD (20 MG VIA NASAL FEEDING QD)
     Dates: start: 20250130, end: 20250220

REACTIONS (2)
  - Rhabdomyolysis [Recovering/Resolving]
  - Product use issue [Unknown]

NARRATIVE: CASE EVENT DATE: 20250130
